FAERS Safety Report 6417001-4 (Version None)
Quarter: 2009Q4

REPORT INFORMATION
  Report Type: 
  Country: None (occurrence: None)
  Receive Date: 20091027
  Receipt Date: 20090922
  Transmission Date: 20100525
  Serious: No
  Sender: FDA-Public Use
  Company Number: US-ALLERGAN-0913236US

PATIENT
  Age: 84 Year
  Sex: Male

DRUGS (2)
  1. ALPHAGAN P [Suspect]
     Indication: GLAUCOMA
     Route: 047
  2. CAPTOPRIL [Concomitant]

REACTIONS (2)
  - EYE SWELLING [None]
  - OCULAR HYPERAEMIA [None]
